FAERS Safety Report 5008844-2 (Version None)
Quarter: 2006Q2

REPORT INFORMATION
  Report Type: 
  Country: None (occurrence: None)
  Receive Date: 20060523
  Receipt Date: 20050923
  Transmission Date: 20061013
  Serious: Yes (Hospitalization)
  Sender: FDA-Public Use
  Company Number: FR-BRISTOL-MYERS SQUIBB COMPANY-13122148

PATIENT
  Age: 24 Year
  Sex: Male
  Weight: 82 kg

DRUGS (4)
  1. ABILIFY [Suspect]
     Indication: SCHIZOPHRENIA
     Dosage: DOSE VALUE:  10 MG AM, AND 10 MG PM.
     Route: 048
     Dates: start: 20050820
  2. RIVOTRIL [Concomitant]
     Dosage: DOSE VALUE:  1/4 MORNING, MIDDAY AND AT 1700 HOURS.
     Dates: start: 20020101
  3. NOZINAN [Concomitant]
     Dates: start: 20020101
  4. LEPTICUR [Concomitant]
     Dates: start: 20050918

REACTIONS (4)
  - DYSPHAGIA [None]
  - MALAISE [None]
  - PAIN OF SKIN [None]
  - PARKINSONISM [None]
